FAERS Safety Report 6279354-X (Version None)
Quarter: 2009Q3

REPORT INFORMATION
  Report Type: 
  Country: None (occurrence: None)
  Receive Date: 20090723
  Receipt Date: 20080624
  Transmission Date: 20100115
  Serious: Yes (Hospitalization)
  Sender: FDA-Public Use
  Company Number: US-AMGEN-US289650

PATIENT
  Sex: Female

DRUGS (16)
  1. EPOGEN [Suspect]
     Indication: DIALYSIS
     Route: 042
     Dates: start: 20070217
  2. METOPROLOL SUCCINATE [Concomitant]
  3. FLURAZEPAM [Concomitant]
  4. CRESTOR [Concomitant]
  5. CELEXA [Concomitant]
  6. ASPIRIN [Concomitant]
  7. CLONAZEPAM [Concomitant]
  8. VITAMIN E [Concomitant]
  9. PHOSLO [Concomitant]
  10. MULTI-VITAMINS [Concomitant]
  11. CARDURA [Concomitant]
  12. MAGNESIUM [Concomitant]
  13. FUROSEMIDE [Concomitant]
  14. OMEPRAZOLE [Concomitant]
  15. DILTIAZEM [Concomitant]
  16. COUMADIN [Concomitant]

REACTIONS (1)
  - THERAPEUTIC RESPONSE DECREASED [None]
